FAERS Safety Report 5211661-1 (Version None)
Quarter: 2007Q1

REPORT INFORMATION
  Report Type: 
  Country: None (occurrence: None)
  Receive Date: 20070117
  Receipt Date: 20070117
  Transmission Date: 20070707
  Serious: Yes (Death)
  Sender: FDA-Public Use
  Company Number: None

PATIENT
  Age: 13 Year
  Sex: Male
  Weight: 45.8133 kg

DRUGS (2)
  1. EFFEXOR XR [Suspect]
     Indication: MAJOR DEPRESSION
     Dosage: 150MG DAILY PO
     Route: 048
     Dates: start: 20060101, end: 20061020
  2. ADDERALL XR 20 [Suspect]
     Indication: ATTENTION DEFICIT/HYPERACTIVITY DISORDER
     Dosage: 20MG DAILY PO
     Route: 048
     Dates: start: 20060821, end: 20061020

REACTIONS (5)
  - COMPLETED SUICIDE [None]
  - INJURY ASPHYXIATION [None]
  - MOOD ALTERED [None]
  - MOOD SWINGS [None]
  - STRESS [None]
